FAERS Safety Report 9153046 (Version 1)
Quarter: 2013Q1

REPORT INFORMATION
  Report Type: Spontaneous
  Country: FR (occurrence: FR)
  Receive Date: 20130311
  Receipt Date: 20130311
  Transmission Date: 20140127
  Serious: Yes (Hospitalization)
  Sender: FDA-Public Use
  Company Number: FR-BRISTOL-MYERS SQUIBB COMPANY-17431495

PATIENT
  Age: 66 Year
  Sex: Female

DRUGS (2)
  1. COUMADINE [Suspect]
     Indication: ANTICOAGULANT THERAPY
     Route: 048
     Dates: end: 20121023
  2. COUMADINE [Suspect]
     Indication: ATRIAL FIBRILLATION
     Route: 048
     Dates: end: 20121023

REACTIONS (11)
  - Condition aggravated [Unknown]
  - Renal failure acute [Unknown]
  - Rhabdomyolysis [Unknown]
  - Fall [Unknown]
  - Haematoma [Unknown]
  - Circulatory collapse [Recovered/Resolved]
  - Rectal haemorrhage [Recovered/Resolved]
  - Melaena [Recovered/Resolved]
  - International normalised ratio increased [Recovered/Resolved]
  - Anaemia [Recovering/Resolving]
  - Overdose [Unknown]
